FAERS Safety Report 20649125 (Version 1)
Quarter: 2022Q1

REPORT INFORMATION
  Report Type: Spontaneous
  Country: HR (occurrence: HR)
  Receive Date: 20220329
  Receipt Date: 20220329
  Transmission Date: 20220423
  Serious: Yes (Other)
  Sender: FDA-Public Use
  Company Number: HR-NOVARTISPH-NVSC2022HR069342

PATIENT
  Age: 65 Year
  Sex: Male

DRUGS (1)
  1. KYMRIAH [Suspect]
     Active Substance: TISAGENLECLEUCEL
     Indication: Product used for unknown indication
     Dosage: UNK, ONCE/SINGLE
     Route: 041
     Dates: start: 20220125

REACTIONS (19)
  - Immune effector cell-associated neurotoxicity syndrome [Recovering/Resolving]
  - Cytokine release syndrome [Unknown]
  - Paralysis [Recovering/Resolving]
  - Pyrexia [Recovered/Resolved]
  - Fatigue [Unknown]
  - Oxygen saturation decreased [Recovered/Resolved]
  - SARS-CoV-2 antibody test positive [Recovering/Resolving]
  - Ataxia [Recovering/Resolving]
  - Asthenia [Unknown]
  - Muscular weakness [Unknown]
  - Dysstasia [Unknown]
  - Gait disturbance [Unknown]
  - Dysarthria [Recovered/Resolved]
  - Speech disorder [Recovered/Resolved]
  - Interleukin level increased [Unknown]
  - Malaise [Unknown]
  - Illness [Unknown]
  - Somnolence [Unknown]
  - Intervertebral disc protrusion [Unknown]
